FAERS Safety Report 7894237-7 (Version None)
Quarter: 2011Q4

REPORT INFORMATION
  Report Type: 
  Country: None (occurrence: None)
  Receive Date: 20111104
  Receipt Date: 20111028
  Transmission Date: 20120403
  Serious: Yes (Life-Threatening, Hospitalization, Other)
  Sender: FDA-Public Use
  Company Number: JP-ABBOTT-11P-087-0871182-00

PATIENT
  Sex: Male

DRUGS (13)
  1. AKINETON [Suspect]
     Indication: SCHIZOPHRENIA
     Route: 048
     Dates: start: 19980812, end: 20110526
  2. LORAZEPAM [Concomitant]
     Indication: SCHIZOPHRENIA
     Route: 048
     Dates: start: 20021004, end: 20060517
  3. LEVOTOMIN [Concomitant]
     Indication: SCHIZOPHRENIA
     Route: 048
     Dates: start: 20100807, end: 20100809
  4. LORAZEPAM [Concomitant]
     Route: 048
     Dates: start: 20060518, end: 20110526
  5. LULLAN [Concomitant]
     Route: 048
     Dates: start: 20060518, end: 20100219
  6. DEPAS [Concomitant]
     Indication: SCHIZOPHRENIA
     Route: 048
     Dates: start: 20090319, end: 20100818
  7. LEVOTOMIN [Concomitant]
     Route: 048
     Dates: start: 20100810, end: 20110612
  8. DEPAS [Concomitant]
     Route: 048
     Dates: start: 20110526, end: 20110612
  9. LENDORMIN [Concomitant]
     Indication: SCHIZOPHRENIA
     Route: 048
     Dates: start: 20060518, end: 20110526
  10. DEPAS [Concomitant]
     Route: 048
     Dates: start: 20100819, end: 20110525
  11. AKINETON [Suspect]
     Route: 048
     Dates: start: 19821002, end: 19980811
  12. LULLAN [Concomitant]
     Indication: SCHIZOPHRENIA
     Route: 048
     Dates: start: 20060418, end: 20110526
  13. RISPERIDONE [Concomitant]
     Indication: SCHIZOPHRENIA
     Route: 048
     Dates: start: 20110317, end: 20110612

REACTIONS (1)
  - NEUROLEPTIC MALIGNANT SYNDROME [None]
